FAERS Safety Report 4846597-9 (Version None)
Quarter: 2005Q4

REPORT INFORMATION
  Report Type: 
  Country: None (occurrence: None)
  Receive Date: 20051202
  Receipt Date: 20051123
  Transmission Date: 20060501
  Serious: Yes (Hospitalization)
  Sender: FDA-Public Use
  Company Number: CIP05002741

PATIENT
  Age: 49 Year

DRUGS (1)
  1. ACTONEL [Suspect]
     Indication: OSTEOPOROSIS
     Dosage: 35 MG ONCE WEEKLY, ORAL
     Route: 048
     Dates: start: 20051013, end: 20050101

REACTIONS (4)
  - DIZZINESS [None]
  - NAUSEA [None]
  - VASCULAR INSUFFICIENCY [None]
  - VOMITING [None]
